FAERS Safety Report 10008609 (Version 1)
Quarter: 2014Q1

REPORT INFORMATION
  Report Type: Spontaneous
  Country: FR (occurrence: FR)
  Receive Date: 20140313
  Receipt Date: 20140313
  Transmission Date: 20141002
  Serious: Yes (Other)
  Sender: FDA-Public Use
  Company Number: ALCN2014FR001565

PATIENT
  Sex: Female

DRUGS (2)
  1. AZOPT [Suspect]
     Indication: GLAUCOMA
     Dosage: 2 GTT, QD
     Route: 047
  2. AZOPT [Suspect]
     Dosage: 3 GTT, QD

REACTIONS (1)
  - Depression [Recovering/Resolving]
